FAERS Safety Report 5008912-5 (Version None)
Quarter: 2006Q2

REPORT INFORMATION
  Report Type: 
  Country: None (occurrence: None)
  Receive Date: 20060523
  Receipt Date: 20060510
  Transmission Date: 20061013
  Serious: Yes (Hospitalization)
  Sender: FDA-Public Use
  Company Number: GB-NOVOPROD-253162

PATIENT
  Age: 67 Year
  Sex: Female
  Weight: 48 kg

DRUGS (7)
  1. INSULIN DETEMIR FLEXPEN [Suspect]
     Indication: INSULIN-REQUIRING TYPE II DIABETES MELLITUS
     Dosage: 21 IU, QD
     Route: 058
     Dates: start: 20051024
  2. GLUCOFORMIN [Concomitant]
     Dosage: 2000 MG, QD
     Route: 048
     Dates: start: 19950410
  3. GLICLAZIDE [Concomitant]
     Dosage: 160 MG, QD
     Route: 048
     Dates: start: 20050309
  4. SIMVASTATIN [Concomitant]
     Dosage: 40 MG, QD
     Route: 048
     Dates: start: 20030120
  5. ASPIRIN                            /00002701/ [Concomitant]
     Dosage: 75 MG, QD
     Route: 048
     Dates: start: 20030220
  6. RAMIPRIL [Concomitant]
     Dosage: 7.5 MG, QD
     Route: 048
     Dates: start: 20030605
  7. ESCITALOPRAM OXALATE [Concomitant]
     Dosage: 5 MG, QD
     Dates: start: 20030410, end: 20060511

REACTIONS (8)
  - ABNORMAL BEHAVIOUR [None]
  - ANOREXIA [None]
  - BLOOD GLUCOSE DECREASED [None]
  - BLOOD GLUCOSE INCREASED [None]
  - CONFUSIONAL STATE [None]
  - FALL [None]
  - HIP FRACTURE [None]
  - MICROALBUMINURIA [None]
